FAERS Safety Report 22073096 (Version 1)
Quarter: 2023Q1

REPORT INFORMATION
  Report Type: Spontaneous
  Country: US (occurrence: None)
  Receive Date: 20230308
  Receipt Date: 20230308
  Transmission Date: 20230417
  Serious: No
  Sender: FDA-Public Use
  Company Number: 2023A051871

PATIENT
  Age: 71 Year
  Sex: Female

DRUGS (3)
  1. FASENRA [Suspect]
     Active Substance: BENRALIZUMAB
     Dosage: 1 INJECTION
     Route: 058
     Dates: start: 2022
  2. FASENRA [Suspect]
     Active Substance: BENRALIZUMAB
     Dosage: 1 INJECTION ON DAY ONE, ANOTHER ON DAY 29, ANOTHER ON 57 DAYS FROM THAT, THEN EVERY6 MONTHS
     Route: 058
  3. DUPILUMAB [Suspect]
     Active Substance: DUPILUMAB
     Indication: Asthma
     Route: 058
     Dates: start: 202204

REACTIONS (2)
  - Influenza [Unknown]
  - Drug ineffective [Unknown]

NARRATIVE: CASE EVENT DATE: 20220101
